FAERS Safety Report 20096465 (Version 1)
Quarter: 2021Q4

REPORT INFORMATION
  Report Type: Spontaneous
  Country: US (occurrence: None)
  Receive Date: 20211120
  Receipt Date: 20211120
  Transmission Date: 20220303
  Serious: Yes (Hospitalization)
  Sender: FDA-Public Use
  Company Number: None

PATIENT
  Age: 31 Year
  Sex: Female

DRUGS (1)
  1. REGEN-COV [Suspect]
     Active Substance: CASIRIVIMAB\IMDEVIMAB
     Indication: COVID-19
     Dosage: OTHER FREQUENCY : ONE TIME INFUSION;?
     Route: 041
     Dates: start: 20211111, end: 20211111

REACTIONS (1)
  - COVID-19 [None]

NARRATIVE: CASE EVENT DATE: 20211111
